FAERS Safety Report 21159599 (Version 1)
Quarter: 2022Q3

REPORT INFORMATION
  Report Type: Report from Study
  Country: DE (occurrence: US)
  Receive Date: 20220802
  Receipt Date: 20220802
  Transmission Date: 20221027
  Serious: Yes (Hospitalization)
  Sender: FDA-Public Use
  Company Number: DE-SA-SAC20220729000658

PATIENT
  Age: 86 Year
  Sex: Male
  Weight: 92 kg

DRUGS (3)
  1. AFLIBERCEPT [Suspect]
     Active Substance: AFLIBERCEPT
     Dosage: 4 MG/KG, QOW
     Route: 042
     Dates: start: 20220530, end: 20220711
  2. FLUOROURACIL [Suspect]
     Active Substance: FLUOROURACIL
     Dosage: 1920 MG/M2, QOW
     Route: 042
     Dates: start: 20220530, end: 20220711
  3. LEUCOVORIN [Suspect]
     Active Substance: LEUCOVORIN
     Dosage: 350 MG/M2, QOW
     Route: 042
     Dates: start: 20220530, end: 20220711

REACTIONS (2)
  - Acute kidney injury [Not Recovered/Not Resolved]
  - Urinary tract infection [Not Recovered/Not Resolved]

NARRATIVE: CASE EVENT DATE: 20220720
